FAERS Safety Report 6490434-6 (Version None)
Quarter: 2009Q4

REPORT INFORMATION
  Report Type: 
  Country: None (occurrence: None)
  Receive Date: 20091211
  Receipt Date: 20091201
  Transmission Date: 20100525
  Serious: Yes (Disabling, Other)
  Sender: FDA-Public Use
  Company Number: US-BAYER-200924952NA

PATIENT
  Age: 14 Year
  Sex: Male

DRUGS (1)
  1. CAMPATH [Suspect]
     Indication: ANAEMIA HAEMOLYTIC AUTOIMMUNE
     Dates: start: 20070801, end: 20081201

REACTIONS (9)
  - ANAEMIA [None]
  - ASTHENIA [None]
  - BLADDER DYSFUNCTION [None]
  - CENTRAL NERVOUS SYSTEM LESION [None]
  - LYMPHOCYTE COUNT INCREASED [None]
  - MULTIPLE SCLEROSIS [None]
  - OPTIC NEURITIS [None]
  - SENSORY DISTURBANCE [None]
  - VISUAL ACUITY REDUCED [None]
